FAERS Safety Report 21757832 (Version 1)
Quarter: 2022Q4

REPORT INFORMATION
  Report Type: Other
  Country: US (occurrence: None)
  Receive Date: 20221221
  Receipt Date: 20221221
  Transmission Date: 20230112
  Serious: No
  Sender: FDA-Public Use
  Company Number: US-ROCHE-3044954

PATIENT
  Age: 45 Year
  Sex: Female

DRUGS (2)
  1. ALTEPLASE [Suspect]
     Active Substance: ALTEPLASE
     Indication: Migraine
     Route: 042
  2. NICARDIPINE [Concomitant]
     Active Substance: NICARDIPINE

REACTIONS (1)
  - Headache [Recovered/Resolved]
